FAERS Safety Report 5779075-3 (Version None)
Quarter: 2008Q2

REPORT INFORMATION
  Report Type: 
  Country: None (occurrence: None)
  Receive Date: 20080613
  Receipt Date: 20080103
  Transmission Date: 20081010
  Serious: Yes (Other)
  Sender: FDA-Public Use
  Company Number: PHEH2008US00548

PATIENT

DRUGS (1)
  1. EXELON [Suspect]

REACTIONS (2)
  - CRYING [None]
  - DYSKINESIA [None]
